FAERS Safety Report 4353401-4 (Version None)
Quarter: 2004Q2

REPORT INFORMATION
  Report Type: 
  Country: None (occurrence: None)
  Receive Date: 20040430
  Receipt Date: 20040420
  Transmission Date: 20050107
  Serious: Yes (Hospitalization, Other)
  Sender: FDA-Public Use
  Company Number: US-JNJFOC-20040404839

PATIENT
  Age: 47 Year
  Sex: Female

DRUGS (9)
  1. DURAGESIC [Suspect]
     Indication: PAIN
     Dosage: 75 UG/HR, 1 IN 72 HOUR, TRANSDERMAL; 150 UG/HR, 2 IN 72 HOUR, TRANSDERMAL
     Route: 062
     Dates: start: 20020101, end: 20040301
  2. DURAGESIC [Suspect]
     Indication: PAIN
     Dosage: 75 UG/HR, 1 IN 72 HOUR, TRANSDERMAL; 150 UG/HR, 2 IN 72 HOUR, TRANSDERMAL
     Route: 062
     Dates: start: 20040301
  3. PROZAC (FLUOXETINE HYDROCHLORIDE) TABLETS [Concomitant]
  4. RELAFEN [Concomitant]
  5. PROTONIX (PANTOPRAZOLE) TABLETS [Concomitant]
  6. TRILEPTAL [Concomitant]
  7. PERMAX (PERGOLIDE MESILATE) TABLETS [Concomitant]
  8. TRAZADONE (TRAZADONE) TABLETS [Concomitant]
  9. MIRALEX (MACROGOL) TABLETS [Concomitant]

REACTIONS (5)
  - FALL [None]
  - FATIGUE [None]
  - HYPERHIDROSIS [None]
  - MEDICATION ERROR [None]
  - SPINAL FRACTURE [None]
